FAERS Safety Report 10210969 (Version 4)
Quarter: 2014Q3

REPORT INFORMATION
  Report Type: Spontaneous
  Country: JP (occurrence: JP)
  Receive Date: 20140602
  Receipt Date: 20140912
  Transmission Date: 20150326
  Serious: Yes (Hospitalization, Other)
  Sender: FDA-Public Use
  Company Number: JP-BRISTOL-MYERS SQUIBB COMPANY-20868014

PATIENT
  Age: 75 Year
  Sex: Male
  Weight: 51 kg

DRUGS (5)
  1. MINOMYCIN [Suspect]
     Active Substance: MINOCYCLINE HYDROCHLORIDE
     Indication: SKIN INFECTION
     Route: 048
     Dates: start: 20140513, end: 20140519
  2. AMLODIN [Concomitant]
     Active Substance: AMLODIPINE BESYLATE
  3. ALOSITOL [Concomitant]
     Active Substance: ALLOPURINOL
  4. ERBITUX [Suspect]
     Active Substance: CETUXIMAB
     Indication: OROPHARYNGEAL CANCER
     Route: 041
     Dates: start: 20140513, end: 20140513
  5. BLOPRESS [Concomitant]
     Active Substance: CANDESARTAN CILEXETIL

REACTIONS (2)
  - Hyperkalaemia [Recovered/Resolved]
  - Renal impairment [Recovering/Resolving]

NARRATIVE: CASE EVENT DATE: 20140519
